FAERS Safety Report 7104221-9 (Version None)
Quarter: 2010Q4

REPORT INFORMATION
  Report Type: 
  Country: None (occurrence: None)
  Receive Date: 20101115
  Receipt Date: 20100609
  Transmission Date: 20110411
  Serious: No
  Sender: FDA-Public Use
  Company Number: US-ALLERGAN-1007577US

PATIENT
  Sex: Female

DRUGS (4)
  1. BOTOX COSMETIC [Suspect]
     Indication: SKIN WRINKLING
     Dosage: UNK
     Route: 030
  2. CIPROFLOXACIN [Concomitant]
  3. LOMOTIL [Concomitant]
  4. OPIUM [Concomitant]

REACTIONS (3)
  - HEADACHE [None]
  - MALAISE [None]
  - VOMITING [None]
